FAERS Safety Report 6893123-9 (Version None)
Quarter: 2010Q3

REPORT INFORMATION
  Report Type: 
  Country: None (occurrence: None)
  Receive Date: 20100731
  Receipt Date: 20090529
  Transmission Date: 20110219
  Serious: No
  Sender: FDA-Public Use
  Company Number: US-PFIZER INC-2009220666

PATIENT
  Sex: Female
  Weight: 55.338 kg

DRUGS (1)
  1. NEURONTIN [Suspect]
     Indication: POST HERPETIC NEURALGIA
     Dosage: 300MG IN THE MORNING AND 900MG IN NIGHT
     Dates: start: 20080801

REACTIONS (1)
  - RASH [None]
